FAERS Safety Report 6199022-2 (Version None)
Quarter: 2009Q2

REPORT INFORMATION
  Report Type: 
  Country: None (occurrence: None)
  Receive Date: 20090519
  Receipt Date: 20090519
  Transmission Date: 20091009
  Serious: Yes (Other)
  Sender: FDA-Public Use
  Company Number: None

PATIENT
  Sex: Female

DRUGS (1)
  1. AMERGE [Suspect]
     Indication: MIGRAINE
     Dosage: 1 TABLET 2X/DAY AS NEEDED PO
     Route: 048
     Dates: start: 20090513, end: 20090513

REACTIONS (2)
  - BLISTER [None]
  - URTICARIA [None]
